FAERS Safety Report 26188907 (Version 2)
Quarter: 2025Q4

REPORT INFORMATION
  Report Type: Spontaneous
  Country: JP (occurrence: JP)
  Receive Date: 20251223
  Receipt Date: 20251229
  Transmission Date: 20260117
  Serious: Yes (Death, Other)
  Sender: GENMAB
  Company Number: JP-GENMAB-2025-04199

PATIENT
  Age: 91 Year
  Sex: Female

DRUGS (1)
  1. EPKINLY [Suspect]
     Active Substance: EPCORITAMAB-BYSP
     Indication: Diffuse large B-cell lymphoma recurrent
     Dosage: UNK, SIX-MONTH ADMINISTRATION
     Route: 065

REACTIONS (3)
  - Cytomegalovirus enterocolitis [Fatal]
  - Diffuse large B-cell lymphoma recurrent [Fatal]
  - Hypogammaglobulinaemia [Unknown]
